FAERS Safety Report 8346358-2 (Version None)
Quarter: 2012Q2

REPORT INFORMATION
  Report Type: 
  Country: None (occurrence: None)
  Receive Date: 20120507
  Receipt Date: 20120424
  Transmission Date: 20120825
  Serious: Yes (Other)
  Sender: FDA-Public Use
  Company Number: 2012-2005

PATIENT
  Age: 57 Year
  Sex: Male

DRUGS (3)
  1. SOMATULINE DEPOT [Suspect]
     Indication: ACROMEGALY
     Dosage: 90 MG (90 MG, 1 IN 28 D), SUBCUTANEOUS
     Route: 058
     Dates: start: 20110916
  2. LABETALOL HCL [Concomitant]
  3. BENICAR [Concomitant]

REACTIONS (5)
  - HOT FLUSH [None]
  - PITUITARY TUMOUR [None]
  - CONDITION AGGRAVATED [None]
  - HYPERTENSION [None]
  - BLOOD TESTOSTERONE DECREASED [None]
